FAERS Safety Report 10373350 (Version 1)
Quarter: 2014Q3

REPORT INFORMATION
  Report Type: Spontaneous
  Country: ES (occurrence: ES)
  Receive Date: 20140808
  Receipt Date: 20140808
  Transmission Date: 20150326
  Serious: Yes (Other)
  Sender: FDA-Public Use
  Company Number: ES-PFIZER INC-2014219606

PATIENT
  Age: 65 Year
  Sex: Female

DRUGS (4)
  1. EMCONCOR COR [Concomitant]
     Active Substance: BISOPROLOL
     Dosage: 5 MG, 1X/DAY
  2. IXIA PLUS [Concomitant]
     Active Substance: HYDROCHLOROTHIAZIDE\OLMESARTAN MEDOXOMIL
     Dosage: 1 DF, 1X/DAY
  3. CARDYL [Suspect]
     Active Substance: ATORVASTATIN CALCIUM
     Indication: HYPERCHOLESTEROLAEMIA
     Dosage: 10 MG, 1X/DAY
     Dates: start: 20140602, end: 20140604
  4. CARDURA [Concomitant]
     Active Substance: DOXAZOSIN MESYLATE
     Dosage: 4 MG, 1X/DAY

REACTIONS (1)
  - Headache [Recovered/Resolved]

NARRATIVE: CASE EVENT DATE: 20140602
